FAERS Safety Report 21464196 (Version 2)
Quarter: 2023Q2

REPORT INFORMATION
  Report Type: Spontaneous
  Country: US (occurrence: US)
  Receive Date: 20221017
  Receipt Date: 20230608
  Transmission Date: 20230721
  Serious: Yes (Hospitalization, Other)
  Sender: FDA-Public Use
  Company Number: None

PATIENT
  Age: 30 Year
  Sex: Male

DRUGS (1)
  1. ACETAMINOPHEN [Suspect]
     Active Substance: ACETAMINOPHEN
     Indication: Product used for unknown indication
     Dosage: 50 TABLETS
     Route: 048

REACTIONS (10)
  - Acute kidney injury [Recovering/Resolving]
  - Methaemoglobinaemia [Unknown]
  - Sulphaemoglobinaemia [Unknown]
  - Metabolic acidosis [Unknown]
  - Lactic acidosis [Unknown]
  - Thrombocytopenia [Unknown]
  - Leukocytosis [Unknown]
  - Coagulopathy [Unknown]
  - Drug-induced liver injury [Recovered/Resolved]
  - Intentional overdose [Recovering/Resolving]
